FAERS Safety Report 11661359 (Version 2)
Quarter: 2015Q4

REPORT INFORMATION
  Report Type: Spontaneous
  Country: JP (occurrence: JP)
  Receive Date: 20151026
  Receipt Date: 20151026
  Transmission Date: 20160304
  Serious: Yes (Life-Threatening)
  Sender: FDA-Public Use
  Company Number: PHJP2012JP002779

PATIENT
  Age: 75 Year
  Sex: Female

DRUGS (15)
  1. ORENCIA [Suspect]
     Active Substance: ABATACEPT
     Indication: RHEUMATOID ARTHRITIS
     Dosage: 500 MG, UNK
     Route: 041
     Dates: start: 20110107
  2. METHOTREXATE CAPSULE [Suspect]
     Active Substance: METHOTREXATE
     Indication: RHEUMATOID ARTHRITIS
     Dosage: 10 MG, QW
     Route: 065
     Dates: start: 200004, end: 20110405
  3. METHOTREXATE CAPSULE [Suspect]
     Active Substance: METHOTREXATE
     Dosage: 4 MG, QW
     Route: 065
     Dates: start: 20110715, end: 20110808
  4. PREDONINE [Concomitant]
     Active Substance: PREDNISOLONE\PREDNISOLONE ACETATE\PREDNISOLONE SODIUM SUCCINATE
     Indication: PRODUCT USED FOR UNKNOWN INDICATION
     Route: 065
  5. RINDERON V [Concomitant]
     Active Substance: BETAMETHASONE VALERATE
     Route: 065
     Dates: start: 20111214
  6. ORENCIA [Suspect]
     Active Substance: ABATACEPT
     Dosage: 500 MG, UNK
     Route: 041
     Dates: start: 20110414
  7. INFLIXIMAB [Concomitant]
     Active Substance: INFLIXIMAB
     Indication: PRODUCT USED FOR UNKNOWN INDICATION
     Dosage: UNK
     Route: 065
     Dates: start: 20090811, end: 20100720
  8. VOLTAREN [Suspect]
     Active Substance: DICLOFENAC SODIUM
     Indication: RHEUMATOID ARTHRITIS
     Dosage: UNK
     Route: 048
     Dates: start: 20090811
  9. ORENCIA [Suspect]
     Active Substance: ABATACEPT
     Dosage: 500 MG, UNK
     Route: 041
     Dates: start: 20110121
  10. ORENCIA [Suspect]
     Active Substance: ABATACEPT
     Dosage: 500 MG, UNK
     Route: 041
     Dates: start: 20110304, end: 20110405
  11. METHOTREXATE CAPSULE [Suspect]
     Active Substance: METHOTREXATE
     Dosage: 6 MG, QW
     Route: 065
     Dates: start: 20110808, end: 20111126
  12. METHOTREXATE CAPSULE [Suspect]
     Active Substance: METHOTREXATE
     Dosage: 4 MG, QW
     Route: 065
     Dates: start: 20111126, end: 20120208
  13. BAKTAR [Concomitant]
     Active Substance: SULFAMETHOXAZOLE\TRIMETHOPRIM
     Route: 042
  14. ORENCIA [Suspect]
     Active Substance: ABATACEPT
     Dosage: 500 MG, UNK
     Route: 041
     Dates: start: 20110203
  15. METHOTREXATE CAPSULE [Suspect]
     Active Substance: METHOTREXATE
     Dosage: 6 MG, QW
     Route: 065
     Dates: start: 20120208, end: 20120509

REACTIONS (3)
  - Peritonitis [Unknown]
  - Cytopenia [None]
  - Duodenal ulcer perforation [Recovered/Resolved]

NARRATIVE: CASE EVENT DATE: 20110523
